FAERS Safety Report 10111154 (Version 1)
Quarter: 2014Q2

REPORT INFORMATION
  Report Type: Spontaneous
  Country: US (occurrence: None)
  Receive Date: 20140421
  Receipt Date: 20140421
  Transmission Date: 20141212
  Serious: No
  Sender: FDA-Public Use
  Company Number: AEGR000133

PATIENT
  Age: 17 Year
  Sex: Female
  Weight: 49.9 kg

DRUGS (1)
  1. JUXTAPID [Suspect]
     Indication: TYPE IIA HYPERLIPIDAEMIA
     Route: 048
     Dates: start: 201304

REACTIONS (4)
  - Faeces discoloured [None]
  - Diarrhoea [None]
  - Nausea [None]
  - Abdominal discomfort [None]
